FAERS Safety Report 6640644-X (Version None)
Quarter: 2010Q1

REPORT INFORMATION
  Report Type: 
  Country: None (occurrence: None)
  Receive Date: 20100318
  Receipt Date: 20100304
  Transmission Date: 20100710
  Serious: Yes (Hospitalization, Other)
  Sender: FDA-Public Use
  Company Number: US-ELI_LILLY_AND_COMPANY-US200912002221

PATIENT
  Sex: Female
  Weight: 86.168 kg

DRUGS (24)
  1. BYETTA [Suspect]
     Indication: TYPE 2 DIABETES MELLITUS
     Dosage: 5 UG, 2/D
     Route: 058
  2. BYETTA [Suspect]
     Dosage: 10 UG, 2/D
     Route: 058
  3. BYETTA [Suspect]
     Dosage: 5 UG, 2/D
     Route: 058
     Dates: start: 20091001, end: 20091101
  4. BYETTA [Suspect]
     Dosage: 10 UG, 2/D
     Route: 058
     Dates: start: 20091101
  5. ASPIRIN [Concomitant]
     Indication: CARDIAC DISORDER
     Dosage: 81 MG, DAILY (1/D)
  6. CENTRUM SILVER [Concomitant]
     Dosage: UNK, UNKNOWN
  7. SPIRONOLACTONE [Concomitant]
     Dosage: UNK, UNKNOWN
  8. PAMINE [Concomitant]
     Indication: FLATULENCE
     Dosage: UNK, UNKNOWN
  9. LIPITOR [Concomitant]
     Dosage: UNK, UNKNOWN
  10. SYNTHROID [Concomitant]
     Dosage: UNK, UNKNOWN
  11. PROTONIX [Concomitant]
     Dosage: UNK, UNKNOWN
  12. PRISTIQ [Concomitant]
     Dosage: UNK, UNKNOWN
  13. SERTRALINE HCL [Concomitant]
     Dosage: UNK, UNKNOWN
  14. FUROSEMIDE [Concomitant]
     Dosage: UNK, UNKNOWN
  15. PRIMIDONE [Concomitant]
     Dosage: UNK, UNKNOWN
  16. TRICOR [Concomitant]
     Dosage: UNK, UNKNOWN
  17. AMITRIPTYLINE HCL [Concomitant]
     Dosage: UNK, UNKNOWN
  18. VITAMIN D [Concomitant]
     Dosage: 50000 U, UNKNOWN
  19. VITAMIN E /00110501/ [Concomitant]
     Dosage: UNK, UNKNOWN
  20. VITAMIN C [Concomitant]
     Dosage: UNK, UNKNOWN
  21. VITAMIN C [Concomitant]
     Dosage: UNK, UNKNOWN
  22. CALCIUM [Concomitant]
     Dosage: UNK, UNKNOWN
  23. MAGNESIUM [Concomitant]
     Dosage: UNK, UNKNOWN
  24. ZINC [Concomitant]
     Dosage: UNK, UNKNOWN

REACTIONS (8)
  - ASTHENIA [None]
  - BLOOD GLUCOSE DECREASED [None]
  - BLOOD GLUCOSE INCREASED [None]
  - BLOOD POTASSIUM DECREASED [None]
  - ELECTROCARDIOGRAM ST SEGMENT [None]
  - HEART RATE IRREGULAR [None]
  - OFF LABEL USE [None]
  - PAIN [None]
